FAERS Safety Report 22864780 (Version 4)
Quarter: 2023Q4

REPORT INFORMATION
  Report Type: Report from Study
  Country: US (occurrence: US)
  Receive Date: 20230825
  Receipt Date: 20231221
  Transmission Date: 20240109
  Serious: No
  Sender: FDA-Public Use
  Company Number: US-002147023-NVSC2023US184256

PATIENT
  Age: 33 Year
  Sex: Female

DRUGS (1)
  1. COSENTYX [Suspect]
     Active Substance: SECUKINUMAB
     Indication: Psoriatic arthropathy
     Dosage: 300 MG, QW
     Route: 058
     Dates: start: 20230808

REACTIONS (5)
  - Nasopharyngitis [Unknown]
  - Injection site swelling [Unknown]
  - Injection site erythema [Unknown]
  - Pain in extremity [Unknown]
  - Injection site induration [Unknown]

NARRATIVE: CASE EVENT DATE: 20230823
